FAERS Safety Report 5952849-1 (Version None)
Quarter: 2008Q4

REPORT INFORMATION
  Report Type: 
  Country: None (occurrence: None)
  Receive Date: 20081114
  Receipt Date: 20081111
  Transmission Date: 20090506
  Serious: Yes (Disabling)
  Sender: FDA-Public Use
  Company Number: US-BRISTOL-MYERS SQUIBB COMPANY-14387922

PATIENT
  Age: 62 Year
  Sex: Male

DRUGS (4)
  1. ABILIFY [Suspect]
     Indication: MAJOR DEPRESSION
     Route: 048
     Dates: start: 20080304
  2. CLONAZEPAM [Concomitant]
     Dosage: TAKEN AT BEDTIME
  3. TRAZODONE HCL [Concomitant]
     Dosage: TAKEN AT BEDTIME
  4. EFFEXOR XR [Concomitant]

REACTIONS (2)
  - EXERCISE TOLERANCE DECREASED [None]
  - FATIGUE [None]
